FAERS Safety Report 8832344 (Version 3)
Quarter: 2013Q4

REPORT INFORMATION
  Report Type: Spontaneous
  Country: US (occurrence: US)
  Receive Date: 20121009
  Receipt Date: 20131010
  Transmission Date: 20140711
  Serious: Yes (Other)
  Sender: FDA-Public Use
  Company Number: US-ALLERGAN-1213523US

PATIENT
  Age: 42 Year
  Sex: Female

DRUGS (5)
  1. LATISSE 0.03% [Suspect]
     Indication: GROWTH OF EYELASHES
     Dosage: 2 GTT, QOD
     Route: 061
     Dates: start: 201207, end: 20120831
  2. LATISSE 0.03% [Suspect]
     Dosage: 2 GTT, QHS
     Route: 061
     Dates: start: 201207, end: 201207
  3. PREVACID [Concomitant]
     Indication: GASTROOESOPHAGEAL REFLUX DISEASE
     Dosage: 1 PO, QD
     Route: 048
     Dates: start: 1989
  4. VALTREX [Concomitant]
     Indication: HERPES SIMPLEX
     Dosage: UNK UNK, PRN
     Route: 048
  5. SOOTHE [Concomitant]
     Indication: POSTOPERATIVE CARE
     Dosage: 2 GTT, QD
     Route: 047
     Dates: start: 2008

REACTIONS (4)
  - Corneal erosion [Unknown]
  - Herpes ophthalmic [Unknown]
  - Vision blurred [Unknown]
  - Incorrect dose administered [Unknown]
